FAERS Safety Report 4539667-6 (Version None)
Quarter: 2004Q4

REPORT INFORMATION
  Report Type: 
  Country: None (occurrence: None)
  Receive Date: 20041223
  Receipt Date: 20041213
  Transmission Date: 20050328
  Serious: Yes (Hospitalization)
  Sender: FDA-Public Use
  Company Number: D012003000583

PATIENT
  Age: 61 Year
  Sex: Male

DRUGS (14)
  1. (OXALIPLATIN) - SOLUTION - 85 MG/M2 [Suspect]
     Dosage: 85 MG/M2 INTRAVENOUS NOS
     Route: 042
     Dates: start: 20030417, end: 20030407
  2. FLUOROURACIL [Suspect]
     Dosage: 400 MG/M2 AS IV BOLUS THEN 600 MG/M2 AS HOURS CONTINUOUS INFUSION D1-DE Q2W; INTRAVENOUS NOS
     Route: 042
     Dates: start: 20030407, end: 20030408
  3. (SR5776 OR PLACEBO) - CAPSULE - 1 MG [Suspect]
     Indication: CHEMOTHERAPY NEUROTOXICITY ATTENUATION
     Dosage: 1 MG QD
     Route: 048
     Dates: start: 20030217, end: 20030416
  4. (SR5776 OR PLACEBO) - CAPSULE - 1 MG [Suspect]
     Indication: COLORECTAL CANCER METASTATIC
     Dosage: 1 MG QD
     Route: 048
     Dates: start: 20030217, end: 20030416
  5. (LEUCOVORIN) - SOLUTION - 200 MG/M2 [Suspect]
     Dosage: 200 MG/M2 AS 2 HOURS INFUSION ON D1-DE Q2W, INTRAVENOUS NOS
     Route: 042
     Dates: start: 20030407, end: 20030408
  6. MERBENTYL (DIXYCLOVERINE HYDROCHLORIDE) [Concomitant]
  7. MAXALON (METOCLOPRAMIDE HYDROCHLORIDE) [Concomitant]
  8. OMEPRAZOLE [Concomitant]
  9. CODANTHRUSATE [Concomitant]
  10. DICLOFENAC SODIUM [Concomitant]
  11. MORPHINE SULFATE [Concomitant]
  12. SEVREDOL (MORPHINE SULFATE) [Concomitant]
  13. PROCHLORPERAZINE MALEATE [Concomitant]
  14. CYCLIZINE [Concomitant]

REACTIONS (2)
  - LOWER RESPIRATORY TRACT INFECTION [None]
  - SPUTUM DISCOLOURED [None]
